FAERS Safety Report 4613644-9 (Version None)
Quarter: 2005Q1

REPORT INFORMATION
  Report Type: 
  Country: None (occurrence: None)
  Receive Date: 20050315
  Receipt Date: 20030320
  Transmission Date: 20050727
  Serious: Yes (Life-Threatening, Hospitalization)
  Sender: FDA-Public Use
  Company Number: 5047

PATIENT
  Sex: Male

DRUGS (2)
  1. MIDAZOLAM [Suspect]
     Dosage: 3 MG IV
     Route: 042
  2. ROPIVACAINE HYDROCHLORIDE [Suspect]
     Dates: start: 20020227

REACTIONS (5)
  - ANAESTHETIC COMPLICATION [None]
  - APNOEA [None]
  - HYPOTENSION [None]
  - SYNCOPE [None]
  - TACHYCARDIA [None]
